FAERS Safety Report 8949406 (Version 3)
Quarter: 2013Q1

REPORT INFORMATION
  Report Type: Spontaneous
  Country: US (occurrence: US)
  Receive Date: 20121206
  Receipt Date: 20130116
  Transmission Date: 20140127
  Serious: Yes (Death, Hospitalization)
  Sender: FDA-Public Use
  Company Number: US-ELI_LILLY_AND_COMPANY-US201212000105

PATIENT
  Age: 54 Year
  Sex: Female
  Weight: 44.9 kg

DRUGS (1)
  1. ALIMTA [Suspect]
     Indication: NON-SMALL CELL LUNG CANCER
     Dosage: 735 MG, UNK
     Route: 042
     Dates: start: 20120914

REACTIONS (3)
  - Malignant neoplasm progression [Fatal]
  - Jaundice [Unknown]
  - Leukocytosis [Unknown]
